FAERS Safety Report 8807962 (Version 2)
Quarter: 2012Q4

REPORT INFORMATION
  Report Type: Report from Study
  Country: JP (occurrence: JP)
  Receive Date: 20120925
  Receipt Date: 20121128
  Transmission Date: 20130627
  Serious: Yes (Hospitalization)
  Sender: FDA-Public Use
  Company Number: JP-VERTEX PHARMACEUTICAL INC.-AE-2012-006671

PATIENT
  Age: 64 Year
  Sex: Male

DRUGS (21)
  1. VX-950 (TELAPREVIR) [Suspect]
     Indication: CHRONIC HEPATITIS C
     Dosage: 2250 mg, qd
     Route: 048
     Dates: start: 20120309, end: 20120328
  2. VX-950 (TELAPREVIR) [Suspect]
     Dosage: 1500 mg, qd
     Route: 048
     Dates: start: 20120329
  3. REBETOL [Suspect]
     Indication: CHRONIC HEPATITIS C
     Dosage: 800 mg, qd
     Route: 048
     Dates: start: 20120309, end: 20120322
  4. REBETOL [Suspect]
     Dosage: 400 mg, qd
     Route: 048
     Dates: start: 20120323, end: 20120328
  5. REBETOL [Suspect]
     Dosage: 200 mg, qd
     Route: 048
     Dates: start: 20120329, end: 20120613
  6. REBETOL [Suspect]
     Dosage: 400 mg, qd
     Route: 048
     Dates: start: 20120614, end: 20120829
  7. PEGINTERFERON ALFA-2B [Suspect]
     Indication: CHRONIC HEPATITIS C
     Dosage: 1.5 ?g/kg, qw
     Route: 058
     Dates: start: 20120309, end: 20120323
  8. PEGINTERFERON ALFA-2B [Suspect]
     Dosage: 1.2 ?g/kg, qw
     Route: 058
     Dates: start: 20120329, end: 20120711
  9. PEGINTERFERON ALFA-2B [Suspect]
     Dosage: 1.1 ?g/kg, qw
     Route: 058
     Dates: start: 20120712, end: 20120815
  10. PEGINTERFERON ALFA-2B [Suspect]
     Dosage: 0.83 ?g/kg, qw
     Route: 058
     Dates: start: 20120816, end: 20120823
  11. LOXONIN [Concomitant]
     Dosage: 60 mg, qd
     Route: 048
     Dates: start: 20120307
  12. LOXONIN [Concomitant]
     Dosage: 60 mg, prn
     Route: 048
  13. AMOBAN [Concomitant]
     Dosage: 7.5 mg, qd
     Route: 048
     Dates: start: 20120307
  14. AMOBAN [Concomitant]
     Dosage: 7.5 mg, prn
     Route: 048
  15. EPADEL-S [Concomitant]
     Dosage: 1800 mg, qd
     Route: 048
     Dates: start: 20120309
  16. FEBURIC [Concomitant]
     Dosage: 20 mg, qd
     Route: 048
     Dates: start: 20120309, end: 20120628
  17. ATELEC [Concomitant]
     Dosage: 10 mg, qd
     Route: 048
     Dates: start: 20120312
  18. NAUZELIN [Concomitant]
     Dosage: 30 mg, qd
     Route: 048
     Dates: start: 20120313
  19. DOGMATYL [Concomitant]
     Dosage: 100 mg, qd
     Route: 048
     Dates: start: 20120315
  20. DOGMATYL [Concomitant]
     Dosage: 150 mg, qd
     Route: 048
  21. TAKEPRON [Concomitant]
     Dosage: 15 mg, qd
     Route: 048
     Dates: start: 20120502, end: 20120513

REACTIONS (2)
  - Malaise [Recovered/Resolved]
  - Off label use [Unknown]
